FAERS Safety Report 9911491 (Version 1)
Quarter: 2014Q1

REPORT INFORMATION
  Report Type: Spontaneous
  Country: US (occurrence: US)
  Receive Date: 20140219
  Receipt Date: 20140219
  Transmission Date: 20141002
  Serious: Yes (Other)
  Sender: FDA-Public Use
  Company Number: PHEH2014US003123

PATIENT
  Sex: Male

DRUGS (2)
  1. TEKTURNA [Suspect]
     Indication: BLOOD PRESSURE ABNORMAL
  2. LIPITOR [Concomitant]
     Dosage: 20 MG

REACTIONS (5)
  - Blood creatinine increased [Unknown]
  - Hypertension [Unknown]
  - Renal failure acute [Unknown]
  - Renal failure chronic [Unknown]
  - Pharyngeal cancer [Unknown]
